FAERS Safety Report 5428566-3 (Version None)
Quarter: 2007Q3

REPORT INFORMATION
  Report Type: 
  Country: None (occurrence: None)
  Receive Date: 20070824
  Receipt Date: 20070816
  Transmission Date: 20080115
  Serious: Yes (Other)
  Sender: FDA-Public Use
  Company Number: JPI-P-001777

PATIENT
  Age: 61 Year
  Sex: Female
  Weight: 63.5036 kg

DRUGS (4)
  1. XYREM [Suspect]
     Indication: CATAPLEXY
     Dosage: (2 IN 1 D), ORAL
     Route: 048
     Dates: start: 20060401, end: 20070701
  2. TRAZODONE HCL [Concomitant]
  3. VENLAFAXINE HCL [Concomitant]
  4. ESCITALOPRAM OXALATE (ESCITALOPRAM OXALATE) [Concomitant]

REACTIONS (2)
  - DEPENDENCE [None]
  - SUICIDAL IDEATION [None]
